FAERS Safety Report 24977723 (Version 1)
Quarter: 2025Q1

REPORT INFORMATION
  Report Type: Spontaneous
  Country: BR (occurrence: BR)
  Receive Date: 20250217
  Receipt Date: 20250217
  Transmission Date: 20250409
  Serious: Yes (Death, Life-Threatening, Hospitalization)
  Sender: JUBILANT
  Company Number: None

PATIENT
  Age: 15 Year
  Sex: Female
  Weight: 54 kg

DRUGS (2)
  1. QUETIAPINE FUMARATE [Suspect]
     Active Substance: QUETIAPINE FUMARATE
     Indication: Suicide attempt
     Route: 048
  2. VALPROIC ACID [Suspect]
     Active Substance: VALPROIC ACID
     Indication: Suicide attempt
     Route: 048

REACTIONS (18)
  - Respiratory failure [Fatal]
  - Hepatic failure [Fatal]
  - Renal impairment [Fatal]
  - Pancreatic failure [Fatal]
  - Electrolyte imbalance [Fatal]
  - Coagulopathy [Fatal]
  - Hypovolaemic shock [Fatal]
  - Metabolic acidosis [Fatal]
  - Arrhythmia [Fatal]
  - Pneumonia aspiration [Fatal]
  - Leukocytosis [Fatal]
  - Escherichia infection [Fatal]
  - Klebsiella infection [Fatal]
  - Toxicity to various agents [Fatal]
  - Cardio-respiratory arrest [Fatal]
  - Completed suicide [Fatal]
  - Overdose [Fatal]
  - Hyperphosphataemia [Fatal]
